FAERS Safety Report 23323902 (Version 1)
Quarter: 2023Q4

REPORT INFORMATION
  Report Type: Spontaneous
  Country: US (occurrence: US)
  Receive Date: 20231221
  Receipt Date: 20231221
  Transmission Date: 20240109
  Serious: Yes (Other)
  Sender: FDA-Public Use
  Company Number: US-AUROBINDO-AUR-APL-2023-010371

PATIENT
  Sex: Male

DRUGS (1)
  1. FINASTERIDE [Suspect]
     Active Substance: FINASTERIDE
     Indication: Product used for unknown indication
     Dosage: 1 MILLIGRAM, DAILY
     Route: 065
     Dates: start: 202207

REACTIONS (9)
  - Urinary retention [Unknown]
  - Erectile dysfunction [Unknown]
  - Disease progression [Unknown]
  - Male orgasmic disorder [Unknown]
  - Pelvic floor muscle weakness [Unknown]
  - Genital hypoaesthesia [Unknown]
  - Anxiety [Unknown]
  - Depression [Unknown]
  - Product substitution issue [Unknown]
